FAERS Safety Report 4771188-8 (Version None)
Quarter: 2005Q3

REPORT INFORMATION
  Report Type: 
  Country: None (occurrence: None)
  Receive Date: 20050914
  Receipt Date: 20050825
  Transmission Date: 20060218
  Serious: Yes (Hospitalization)
  Sender: FDA-Public Use
  Company Number: USA0508106164

PATIENT
  Age: 46 Year
  Sex: Male

DRUGS (4)
  1. CYMBALTA [Suspect]
     Dosage: 60 MG
     Dates: start: 20050818
  2. ACTOS [Concomitant]
  3. LISINOPRIL W/HYDROCHLOROTHIAZIDE) [Concomitant]
  4. GLYBURIDE W/METFORMIN HYDROCHLORIDE [Concomitant]

REACTIONS (2)
  - NEUROPATHY PERIPHERAL [None]
  - RENAL FAILURE ACUTE [None]
